FAERS Safety Report 16318330 (Version 1)
Quarter: 2019Q2

REPORT INFORMATION
  Report Type: Spontaneous
  Country: US (occurrence: US)
  Receive Date: 20190410
  Receipt Date: 20190410
  Transmission Date: 20190711
  Serious: No
  Sender: FDA-Public Use
  Company Number: None

PATIENT
  Age: 39 Year
  Sex: Female

DRUGS (1)
  1. MYCOPHENOLATE SUS 200MG/M; [Suspect]
     Active Substance: MYCOPHENOLIC ACID
     Dates: start: 201804

REACTIONS (2)
  - Dysphagia [None]
  - Chest discomfort [None]

NARRATIVE: CASE EVENT DATE: 20190410
